FAERS Safety Report 5372645-6 (Version None)
Quarter: 2007Q2

REPORT INFORMATION
  Report Type: 
  Country: None (occurrence: None)
  Receive Date: 20070626
  Receipt Date: 20070614
  Transmission Date: 20071010
  Serious: Yes (Hospitalization)
  Sender: FDA-Public Use
  Company Number: GXKR2007IN05119

PATIENT
  Age: 56 Year
  Sex: Female
  Weight: 52 kg

DRUGS (2)
  1. PREDNISOLONE [Suspect]
     Indication: RENAL TRANSPLANT
  2. AZATHIOPRINE [Suspect]
     Indication: RENAL TRANSPLANT

REACTIONS (12)
  - ANGIOCENTRIC LYMPHOMA [None]
  - BENIGN LUNG NEOPLASM [None]
  - BRONCHITIS [None]
  - COUGH [None]
  - DYSPNOEA EXERTIONAL [None]
  - EPSTEIN-BARR VIRUS TEST POSITIVE [None]
  - IDIOPATHIC PULMONARY FIBROSIS [None]
  - INTERSTITIAL LUNG DISEASE [None]
  - PERICARDIAL EFFUSION [None]
  - PLEURAL EFFUSION [None]
  - PYREXIA [None]
  - WEIGHT DECREASED [None]
